FAERS Safety Report 8973771 (Version 1)
Quarter: 2012Q4

REPORT INFORMATION
  Report Type: 
  Country: DE (occurrence: FR)
  Receive Date: 20121219
  Receipt Date: 20121219
  Transmission Date: 20130627
  Serious: Yes (Hospitalization, Disabling)
  Sender: FDA-Public Use
  Company Number: FR-BRISTOL-MYERS SQUIBB COMPANY-17222712

PATIENT
  Age: 64 Year
  Sex: Female

DRUGS (2)
  1. ERBITUX SOLN FOR INF [Suspect]
     Indication: COLON CANCER METASTATIC
     Dosage: On 04Sep12:8 course,17Sep12:9 Course.Solution fof Injection.
     Route: 042
     Dates: start: 20120501
  2. OXALIPLATIN [Suspect]
     Indication: COLON CANCER METASTATIC
     Dosage: Solution fof Injection.On 04Sep12:8 course,
     Route: 042
     Dates: start: 20120501, end: 20120917

REACTIONS (2)
  - Deafness unilateral [Not Recovered/Not Resolved]
  - Neurosensory hypoacusis [Not Recovered/Not Resolved]
